FAERS Safety Report 9553009 (Version 1)
Quarter: 2013Q3

REPORT INFORMATION
  Report Type: Spontaneous
  Country: US (occurrence: US)
  Receive Date: 20130925
  Receipt Date: 20130925
  Transmission Date: 20140515
  Serious: No
  Sender: FDA-Public Use
  Company Number: US-009507513-1309USA010528

PATIENT
  Sex: Female

DRUGS (1)
  1. ZEGERID OTC CAPSULES [Suspect]
     Indication: GASTRIC DISORDER
     Dosage: UNK, UNKNOWN
     Route: 048
     Dates: start: 2013

REACTIONS (3)
  - Product quality issue [Unknown]
  - Therapeutic response unexpected [Unknown]
  - Off label use [Unknown]
